FAERS Safety Report 9701303 (Version 1)
Quarter: 2013Q4

REPORT INFORMATION
  Report Type: Spontaneous
  Country: US (occurrence: US)
  Receive Date: 20131121
  Receipt Date: 20131121
  Transmission Date: 20140711
  Serious: No
  Sender: FDA-Public Use
  Company Number: US-GILEAD-2008-0016300

PATIENT
  Sex: Male

DRUGS (13)
  1. LETAIRIS [Suspect]
     Indication: PULMONARY ARTERIAL HYPERTENSION
     Route: 048
  2. REVATIO [Concomitant]
  3. DEMADEX [Concomitant]
  4. TOPROL XL [Concomitant]
  5. TRAMADOL [Concomitant]
  6. ASPIRIN [Concomitant]
  7. NEUROTIN [Concomitant]
  8. ZYBAN [Concomitant]
  9. AMBIEN [Concomitant]
  10. PEPCID [Concomitant]
  11. BACTRIM [Concomitant]
  12. SENOKOT [Concomitant]
  13. COLACE [Concomitant]

REACTIONS (1)
  - Oedema peripheral [Not Recovered/Not Resolved]
